FAERS Safety Report 9599965 (Version 1)
Quarter: 2013Q4

REPORT INFORMATION
  Report Type: Spontaneous
  Country: US (occurrence: US)
  Receive Date: 20131004
  Receipt Date: 20131004
  Transmission Date: 20140711
  Serious: No
  Sender: FDA-Public Use
  Company Number: US-AMGEN-USASP2013032075

PATIENT
  Age: 61 Year
  Sex: Female
  Weight: 108.84 kg

DRUGS (8)
  1. ENBREL [Suspect]
     Indication: PRODUCT USED FOR UNKNOWN INDICATION
     Dosage: 50 MG, 2 TIMES/WK
     Route: 058
  2. METHOTREXATE [Concomitant]
     Dosage: UNK
  3. ARMOUR THYROID [Concomitant]
     Dosage: 15 MG, UNK
  4. TRIAMTEREEN/HYDROCHLOOTTHIAZIDE [Concomitant]
     Dosage: 37.5-25
  5. VITAMIN D2 [Concomitant]
     Dosage: 400 UNIT, UNK
  6. TAZORAC [Concomitant]
     Dosage: 0.1 %, UNK
  7. CLOBETASOL [Concomitant]
     Dosage: 0.05 %, UNK
  8. HYDROCODONE/APAP [Concomitant]
     Dosage: 5-500 MG, UNK

REACTIONS (1)
  - Pain [Unknown]
